FAERS Safety Report 24134713 (Version 1)
Quarter: 2024Q3

REPORT INFORMATION
  Report Type: Spontaneous
  Country: FR (occurrence: FR)
  Receive Date: 20240725
  Receipt Date: 20240725
  Transmission Date: 20241017
  Serious: Yes (Hospitalization, Other)
  Sender: CHEPLAPHARM
  Company Number: None

PATIENT
  Age: 56 Year
  Sex: Female
  Weight: 53 kg

DRUGS (6)
  1. CAPECITABINE [Suspect]
     Active Substance: CAPECITABINE
     Indication: Breast cancer metastatic
     Dosage: 1250 MG/M? 2/D AT 80% I.E. 1500 MG 2/D (I.E. 3 TABLETS OF 500 MG MORNING AND EVENING), FOR 14 DAY...
     Route: 048
     Dates: start: 20240606, end: 20240616
  2. PREDNISOLONE [Suspect]
     Active Substance: PREDNISOLONE
     Dosage: DAILY DOSE: 80 MILLIGRAM
  3. BACTRIM [Suspect]
     Active Substance: SULFAMETHOXAZOLE\TRIMETHOPRIM
     Indication: Antifungal prophylaxis
     Dosage: 1 CP 3/WEEK (MONDAY-WEDNESDAY-FRIDAY)?COMPRESSED TABLET
     Route: 048
     Dates: start: 20240502, end: 20240624
  4. FENTANYL [Concomitant]
     Active Substance: FENTANYL\FENTANYL CITRATE
  5. GABAPENTIN [Concomitant]
     Active Substance: GABAPENTIN
     Dosage: 3/DAY?DAILY DOSE: 1200 MILLIGRAM
  6. DOLIPRANE [Concomitant]
     Active Substance: ACETAMINOPHEN

REACTIONS (5)
  - Thrombotic microangiopathy [Not Recovered/Not Resolved]
  - Thrombocytopenia [Not Recovered/Not Resolved]
  - Gait inability [Unknown]
  - Urinary retention [Unknown]
  - Abdominal pain [Unknown]

NARRATIVE: CASE EVENT DATE: 20240616
